FAERS Safety Report 21105809 (Version 1)
Quarter: 2022Q3

REPORT INFORMATION
  Report Type: Spontaneous
  Country: FR (occurrence: FR)
  Receive Date: 20220720
  Receipt Date: 20220720
  Transmission Date: 20221027
  Serious: Yes (Other)
  Sender: FDA-Public Use
  Company Number: FR-002147023-NVSC2022FR153422

PATIENT
  Sex: Female

DRUGS (2)
  1. GEMCITABINE HYDROCHLORIDE [Suspect]
     Active Substance: GEMCITABINE HYDROCHLORIDE
     Indication: Non-small cell lung cancer stage IV
     Dosage: UNK UNK, UNKNOWN
     Route: 065
     Dates: start: 202108, end: 202205
  2. CARBOPLATIN [Suspect]
     Active Substance: CARBOPLATIN
     Indication: Non-small cell lung cancer stage IV
     Dosage: UNK UNK, UNKNOWN
     Route: 065
     Dates: start: 202108, end: 202205

REACTIONS (2)
  - Non-small cell lung cancer stage IV [Unknown]
  - Malignant neoplasm progression [Unknown]
